FAERS Safety Report 8514533-X (Version None)
Quarter: 2012Q3

REPORT INFORMATION
  Report Type: 
  Country: None (occurrence: None)
  Receive Date: 20120717
  Receipt Date: 20120706
  Transmission Date: 20120928
  Serious: Yes (Hospitalization, Other)
  Sender: FDA-Public Use
  Company Number: US-ELI_LILLY_AND_COMPANY-US201205002493

PATIENT
  Sex: Female
  Weight: 36.735 kg

DRUGS (2)
  1. FORTEO [Suspect]
     Indication: OSTEOPOROSIS
     Dosage: 20 UG, QD
     Dates: start: 20120501
  2. TYLENOL (CAPLET) [Concomitant]
     Indication: PAIN

REACTIONS (17)
  - BACK PAIN [None]
  - MALAISE [None]
  - DIZZINESS [None]
  - PANCREATIC DISORDER [None]
  - OEDEMA [None]
  - DYSPNOEA [None]
  - DRUG DOSE OMISSION [None]
  - CHEST DISCOMFORT [None]
  - GASTROOESOPHAGEAL REFLUX DISEASE [None]
  - PAIN [None]
  - LABORATORY TEST ABNORMAL [None]
  - HEADACHE [None]
  - THROAT TIGHTNESS [None]
  - HEART RATE INCREASED [None]
  - WOUND INFECTION [None]
  - WEIGHT DECREASED [None]
  - PANCREATIC CARCINOMA [None]
